FAERS Safety Report 19654711 (Version 2)
Quarter: 2021Q3

REPORT INFORMATION
  Report Type: Spontaneous
  Country: US (occurrence: US)
  Receive Date: 20210804
  Receipt Date: 20210827
  Transmission Date: 20211014
  Serious: No
  Sender: FDA-Public Use
  Company Number: US-BAUSCH-BL-2021-022616

PATIENT
  Age: 82 Year
  Sex: Female

DRUGS (1)
  1. OPCON?A [Suspect]
     Active Substance: NAPHAZOLINE HYDROCHLORIDE\PHENIRAMINE MALEATE
     Indication: HYPERSENSITIVITY
     Route: 045
     Dates: start: 20210625

REACTIONS (2)
  - Incorrect route of product administration [Unknown]
  - Eye pain [Unknown]

NARRATIVE: CASE EVENT DATE: 202106
